FAERS Safety Report 16756492 (Version 2)
Quarter: 2019Q4

REPORT INFORMATION
  Report Type: Spontaneous
  Country: JP (occurrence: JP)
  Receive Date: 20190829
  Receipt Date: 20191003
  Transmission Date: 20200122
  Serious: Yes (Death, Life-Threatening, Hospitalization)
  Sender: FDA-Public Use
  Company Number: JP-DSJP-DSJ-2019-132877

PATIENT

DRUGS (16)
  1. LIXIANA OD TABLETS 30MG [Suspect]
     Active Substance: EDOXABAN TOSYLATE
     Dosage: 30 MG, QD
     Route: 048
     Dates: start: 20190813, end: 20190827
  2. LANSOPRAZOLE. [Suspect]
     Active Substance: LANSOPRAZOLE
     Indication: GASTROINTESTINAL HAEMORRHAGE
     Dosage: 15 MG, QD
     Route: 048
     Dates: start: 20190814, end: 20190827
  3. BAYASPIRIN [Suspect]
     Active Substance: ASPIRIN
     Indication: ANGINA PECTORIS
     Dosage: 100 MG, QD
     Route: 048
     Dates: start: 20190814, end: 20190827
  4. ATORVASTATIN                       /01326102/ [Suspect]
     Active Substance: ATORVASTATIN
     Indication: ANGINA PECTORIS
     Dosage: 10 MG, QD
     Route: 048
     Dates: start: 20190815, end: 20190827
  5. BISONO [Suspect]
     Active Substance: BISOPROLOL
     Indication: CARDIAC FAILURE
     Dosage: 4 MG, QD
     Route: 050
     Dates: start: 20190809, end: 20190827
  6. CEFTRIAXONE                        /00672202/ [Suspect]
     Active Substance: CEFTRIAXONE
     Indication: PNEUMONIA
     Dosage: 2 G, QD
     Route: 050
     Dates: start: 20190810, end: 20190816
  7. HANP FOR INJECTION 1000 [Suspect]
     Active Substance: CARPERITIDE
     Dosage: 3000 UG, QD
     Route: 050
     Dates: start: 20190819, end: 20190826
  8. METHYLPREDNISOLONE NA SUCCINATE [Suspect]
     Active Substance: METHYLPREDNISOLONE SODIUM SUCCINATE
     Dosage: 125MG
     Dates: start: 20190819
  9. VERAPAMIL                          /00014302/ [Suspect]
     Active Substance: VERAPAMIL HYDROCHLORIDE
     Indication: CARDIAC FAILURE
     Dosage: 40 MG, BID
     Route: 048
     Dates: start: 20190813, end: 20190827
  10. LASIX [Suspect]
     Active Substance: FUROSEMIDE
     Indication: CARDIAC FAILURE
     Dosage: UNK
     Route: 050
     Dates: start: 20190809, end: 20190809
  11. CEFTRIAXONE                        /00672202/ [Suspect]
     Active Substance: CEFTRIAXONE
     Dosage: 2 G, QD
     Route: 050
     Dates: start: 20190817, end: 20190826
  12. HANP FOR INJECTION 1000 [Suspect]
     Active Substance: CARPERITIDE
     Indication: CARDIAC FAILURE
     Dosage: UNK
     Route: 050
     Dates: start: 20190809, end: 20190809
  13. SPIRONOLACTONE. [Suspect]
     Active Substance: SPIRONOLACTONE
     Indication: CARDIAC FAILURE
     Dosage: 25 MG, QD
     Route: 048
     Dates: start: 20190822, end: 20190827
  14. LASIX [Suspect]
     Active Substance: FUROSEMIDE
     Dosage: 10 MG, BID
     Route: 050
     Dates: start: 20190819, end: 20190826
  15. HEPARIN [Suspect]
     Active Substance: HEPARIN SODIUM
     Indication: CARDIAC FAILURE
     Dosage: UNK
     Route: 065
     Dates: start: 20190809
  16. AZITHROMYCIN HYDRATE [Suspect]
     Active Substance: AZITHROMYCIN DIHYDRATE
     Dosage: UNK
     Dates: start: 20190816

REACTIONS (3)
  - Interstitial lung disease [Fatal]
  - Pneumonia bacterial [Fatal]
  - Pneumonia [Unknown]

NARRATIVE: CASE EVENT DATE: 20190810
